FAERS Safety Report 7732225-1 (Version None)
Quarter: 2011Q3

REPORT INFORMATION
  Report Type: 
  Country: None (occurrence: None)
  Receive Date: 20110906
  Receipt Date: 20110817
  Transmission Date: 20111222
  Serious: No
  Sender: FDA-Public Use
  Company Number: US-AMGEN-USASP2011041858

PATIENT
  Age: 84 Year
  Sex: Female

DRUGS (4)
  1. COZAAR [Concomitant]
     Dosage: UNK
  2. ADVIL LIQUI-GELS [Concomitant]
  3. PROLIA [Suspect]
     Indication: OSTEOPOROSIS POSTMENOPAUSAL
     Dosage: UNK
     Dates: start: 20110616
  4. NORVASC [Concomitant]
     Dosage: UNK

REACTIONS (9)
  - DEPRESSED LEVEL OF CONSCIOUSNESS [None]
  - BLOOD CHOLESTEROL INCREASED [None]
  - INSOMNIA [None]
  - PAIN IN EXTREMITY [None]
  - MOBILITY DECREASED [None]
  - OEDEMA PERIPHERAL [None]
  - POLLAKIURIA [None]
  - RASH [None]
  - PRURITUS [None]
